FAERS Safety Report 8677404 (Version 2)
Quarter: 2013Q1

REPORT INFORMATION
  Report Type: Spontaneous
  Country: US (occurrence: US)
  Receive Date: 20120723
  Receipt Date: 20130306
  Transmission Date: 20140127
  Serious: Yes (Other)
  Sender: FDA-Public Use
  Company Number: PHEH2007US016485

PATIENT
  Age: 77 None
  Sex: Male
  Weight: 74.38 kg

DRUGS (46)
  1. AREDIA [Suspect]
     Indication: OSTEOPOROSIS
     Dosage: 120 MG, QMO
     Route: 042
     Dates: start: 199901, end: 20060526
  2. ZOMETA [Suspect]
     Indication: OSTEOPOROSIS
     Dosage: 4 MG, QW3
     Dates: start: 20011220
  3. LUPRON [Suspect]
     Indication: PROSTATE CANCER
     Dosage: 7.5 MG,
     Dates: start: 19970422
  4. THALIDOMIDE [Concomitant]
     Indication: PROSTATE CANCER
     Dosage: 50 MG, QD
     Dates: start: 20001218, end: 200102
  5. LIPITOR [Concomitant]
     Dosage: 10 MG, QD
  6. CELEBREX [Concomitant]
  7. PROSCAR [Concomitant]
     Indication: PROSTATE CANCER
     Dosage: 5 MG, QD
  8. CARDURA                                 /IRE/ [Concomitant]
     Dosage: 4 MG, QD
  9. FOSAMAX [Concomitant]
  10. ASPIRIN ^BAYER^ [Concomitant]
  11. DECADRON                                /CAN/ [Concomitant]
     Dosage: 20 MG, MONTHLY
  12. CHEMOTHERAPEUTICS NOS [Concomitant]
  13. TAXOTERE [Concomitant]
  14. CARBOPLATIN [Concomitant]
  15. VIOXX [Concomitant]
  16. CLINDAMYCIN [Concomitant]
     Dosage: 300 MG,
  17. HYDROCODONE [Concomitant]
  18. NEURONTIN [Concomitant]
     Dosage: 100 MG,
  19. REVLIMID [Concomitant]
     Dosage: 5 MG,
  20. VITAMIN D [Concomitant]
  21. KETOCONAZOLE [Concomitant]
  22. TRELSTAR - SLOW RELEASE [Concomitant]
  23. LEUKINE [Concomitant]
  24. LOVENOX [Concomitant]
  25. ZOCOR ^DIECKMANN^ [Concomitant]
  26. LYRICA [Concomitant]
     Dosage: 50 MG, 1,  3 TIMES DAILY
  27. PREDNISONE [Concomitant]
  28. ANTIINFLAMMATORY/ANTIRHEUMATIC NON-STEROIDS [Concomitant]
     Dates: start: 1999, end: 2002
  29. FLUTAMIDE [Concomitant]
     Indication: PROSTATE CANCER
  30. ZETIA [Concomitant]
     Indication: HYPERCHOLESTEROLAEMIA
  31. AMITIZA [Concomitant]
  32. CYMBALTA [Concomitant]
  33. LORAZEPAM [Concomitant]
  34. PERCOCET [Concomitant]
  35. TAXOL [Concomitant]
  36. NEULASTA [Concomitant]
  37. ZOLOFT (SERTRALINE HYDROCHLORIDE) [Concomitant]
     Route: 048
  38. VIAGRA [Concomitant]
  39. DITROPAN                                /USA/ [Concomitant]
  40. AGGRENOX [Concomitant]
  41. NEXIUM [Concomitant]
  42. CITRACAL [Concomitant]
  43. VITAMIN B6 [Concomitant]
  44. FENTANYL CITRATE [Concomitant]
  45. POTASSIUM [Concomitant]
  46. DIGOXIN [Concomitant]
     Indication: ATRIAL FIBRILLATION

REACTIONS (108)
  - Osteonecrosis of jaw [Unknown]
  - Bone disorder [Unknown]
  - Gingival disorder [Unknown]
  - Bone scan abnormal [Unknown]
  - Infection [Unknown]
  - Bone lesion [Unknown]
  - Osteomalacia [Unknown]
  - Huerthle cell carcinoma [Unknown]
  - Animal bite [Unknown]
  - Hyperparathyroidism [Unknown]
  - Blood parathyroid hormone increased [Unknown]
  - Parathyroid tumour benign [Unknown]
  - Goitre [Unknown]
  - Chronic obstructive pulmonary disease [Unknown]
  - Cholelithiasis [Unknown]
  - Diverticulum [Unknown]
  - Bone pain [Unknown]
  - Irritable bowel syndrome [Unknown]
  - Fall [Unknown]
  - Rib fracture [Unknown]
  - Haemoptysis [Unknown]
  - Contusion [Unknown]
  - Anaemia [Unknown]
  - Retinal ischaemia [Unknown]
  - Night sweats [Unknown]
  - Gynaecomastia [Unknown]
  - Bacterial infection [Unknown]
  - Chronic sinusitis [Unknown]
  - Depression [Unknown]
  - Nephrolithiasis [Unknown]
  - Spinal osteoarthritis [Unknown]
  - Cholecystitis [Unknown]
  - Jaw fracture [Unknown]
  - Myocardial infarction [Unknown]
  - Cerebrovascular accident [Unknown]
  - Sleep apnoea syndrome [Unknown]
  - Renal failure [Unknown]
  - Large intestine polyp [Unknown]
  - Cystitis [Unknown]
  - Osteopenia [Unknown]
  - Cyst [Unknown]
  - Gastric disorder [Unknown]
  - Constipation [Unknown]
  - Upper-airway cough syndrome [Unknown]
  - Oropharyngeal pain [Unknown]
  - Epistaxis [Unknown]
  - Hypertension [Unknown]
  - Drug hypersensitivity [Unknown]
  - Bedridden [Unknown]
  - Pain in extremity [Unknown]
  - Headache [Unknown]
  - Occult blood positive [Unknown]
  - Abdominal hernia [Unknown]
  - Melanocytic naevus [Unknown]
  - Mania [Unknown]
  - Back pain [Unknown]
  - Abdominal pain upper [Unknown]
  - Pain [Unknown]
  - Pulmonary granuloma [Unknown]
  - Renal cyst [Unknown]
  - Lung disorder [Unknown]
  - Abdominal pain [Unknown]
  - Nausea [Unknown]
  - Weight decreased [Unknown]
  - Swelling face [Unknown]
  - Oral discharge [Unknown]
  - Hypotension [Unknown]
  - Dysuria [Unknown]
  - Hypoaesthesia oral [Unknown]
  - Jaw disorder [Unknown]
  - Fistula [Unknown]
  - Rectal haemorrhage [Unknown]
  - Dyspepsia [Unknown]
  - Osteitis [Unknown]
  - Tooth abscess [Unknown]
  - Seasonal allergy [Unknown]
  - Urinary tract infection [Unknown]
  - Urine output [Unknown]
  - Haematuria [Unknown]
  - Hypercholesterolaemia [Unknown]
  - Renal failure chronic [Unknown]
  - Dizziness [Unknown]
  - Benign prostatic hyperplasia [Unknown]
  - Onychomycosis [Unknown]
  - Obstructive uropathy [Unknown]
  - Compression fracture [Unknown]
  - Erectile dysfunction [Unknown]
  - Arteriosclerosis [Unknown]
  - Nocturia [Unknown]
  - Neutropenia [Unknown]
  - Blood creatinine increased [Unknown]
  - Osteomyelitis [Unknown]
  - Blindness [Unknown]
  - Gastroduodenitis [Unknown]
  - Deep vein thrombosis [Unknown]
  - Oedema [Unknown]
  - Loss of consciousness [Unknown]
  - Cerebellar infarction [Unknown]
  - Atrial fibrillation [Unknown]
  - Sinus bradycardia [Unknown]
  - Metastases to bone [Unknown]
  - Wound [Unknown]
  - Rhinitis allergic [Unknown]
  - Swelling [Unknown]
  - Deafness neurosensory [Unknown]
  - Vertigo [Unknown]
  - Cerumen impaction [Unknown]
  - Dehydration [Unknown]
